FAERS Safety Report 9971259 (Version 1)
Quarter: 2014Q1

REPORT INFORMATION
  Report Type: Spontaneous
  Country: US (occurrence: None)
  Receive Date: 20140127
  Receipt Date: 20140127
  Transmission Date: 20141002
  Serious: Yes (Other)
  Sender: FDA-Public Use
  Company Number: 1265752

PATIENT
  Age: 31 Year
  Sex: 0

DRUGS (1)
  1. RITUXAN [Suspect]

REACTIONS (3)
  - Chest discomfort [None]
  - Lip swelling [None]
  - Pharyngeal disorder [None]
